FAERS Safety Report 10582152 (Version 2)
Quarter: 2014Q4

REPORT INFORMATION
  Report Type: Report from Study
  Country: ES (occurrence: ES)
  Receive Date: 20141113
  Receipt Date: 20141215
  Transmission Date: 20150529
  Serious: Yes (Other)
  Sender: FDA-Public Use
  Company Number: ES-CELGENE-ESP-2014111621

PATIENT
  Age: 75 Year
  Sex: Male

DRUGS (14)
  1. CC-4047 [Suspect]
     Active Substance: POMALIDOMIDE
     Indication: PLASMA CELL MYELOMA
     Route: 048
     Dates: start: 20140901, end: 20140915
  2. CC-4047 [Suspect]
     Active Substance: POMALIDOMIDE
     Indication: SCLERODERMA
  3. FUROSEMIDE. [Concomitant]
     Active Substance: FUROSEMIDE
     Indication: BRONCHOPNEUMONIA
     Dosage: 40 MILLIGRAM
     Route: 048
     Dates: start: 20140916
  4. OMEPRAZOLE. [Concomitant]
     Active Substance: OMEPRAZOLE
     Indication: PROPHYLAXIS
     Route: 048
     Dates: start: 20140916
  5. SULFAMETOXAZOL/TRIMETOPRIM [Concomitant]
     Indication: BRONCHOPNEUMONIA
     Dosage: 400/80, 2 PILLS/8H
     Route: 048
     Dates: start: 20140916
  6. DEXAMETHASONE. [Suspect]
     Active Substance: DEXAMETHASONE
     Indication: PLASMA CELL MYELOMA
     Route: 065
     Dates: start: 20140512, end: 20140608
  7. DEXAMETHASONE. [Suspect]
     Active Substance: DEXAMETHASONE
     Route: 065
     Dates: start: 20140901, end: 20140915
  8. CC-4047 [Suspect]
     Active Substance: POMALIDOMIDE
     Indication: PLASMA CELL MYELOMA
     Route: 048
     Dates: start: 20140512, end: 20140608
  9. CC-4047 [Suspect]
     Active Substance: POMALIDOMIDE
     Indication: SYSTEMIC SCLEROSIS PULMONARY
  10. SALBUTAMOL [Concomitant]
     Active Substance: ALBUTEROL
     Indication: BRONCHOPNEUMONIA
     Route: 055
     Dates: start: 20140916
  11. CC-4047 [Suspect]
     Active Substance: POMALIDOMIDE
     Indication: RENAL CELL CARCINOMA
     Route: 048
     Dates: start: 20141107
  12. CLEXANE [Concomitant]
     Active Substance: ENOXAPARIN SODIUM
     Indication: THROMBOSIS PROPHYLAXIS
     Route: 058
     Dates: start: 20140530
  13. CC-4047 [Suspect]
     Active Substance: POMALIDOMIDE
     Indication: PROSTATE CANCER
  14. DEXAMETHASONE. [Suspect]
     Active Substance: DEXAMETHASONE
     Route: 065
     Dates: start: 20141107

REACTIONS (1)
  - Gastrointestinal stromal tumour [Not Recovered/Not Resolved]

NARRATIVE: CASE EVENT DATE: 20141105
